FAERS Safety Report 7224236-X (Version None)
Quarter: 2011Q1

REPORT INFORMATION
  Report Type: 
  Country: None (occurrence: None)
  Receive Date: 20110106
  Receipt Date: 20110106
  Transmission Date: 20110831
  Serious: Yes (Hospitalization)
  Sender: FDA-Public Use
  Company Number: None

PATIENT
  Age: 73 Year
  Sex: Male
  Weight: 67.1324 kg

DRUGS (4)
  1. CISPLATIN [Suspect]
     Indication: BLADDER CANCER
     Dosage: EVERY 2 WEEKS WITH NEULASTA SUPPORT
     Route: 042
     Dates: start: 20101229
  2. VINBLASTINE 3MG/M2 IVP [Suspect]
     Indication: BLADDER CANCER
     Dosage: EVERY 2 WEEKS WITH NEULASTA SUPPORT
     Route: 042
     Dates: start: 20101214
  3. METHOTREXATE [Suspect]
     Indication: BLADDER CANCER
     Dosage: EVERY 2 WEEKS WITH NEULASTA SUPPORT
     Route: 042
     Dates: start: 20101123
  4. DOXORUBICIN 20 MG/M2 IVP [Suspect]
     Indication: BLADDER CANCER
     Dosage: EVERY 2 WEEKS WITH NEULASTA SUPPORT
     Route: 042
     Dates: start: 20101229

REACTIONS (5)
  - DIARRHOEA [None]
  - HYPOPHAGIA [None]
  - DEHYDRATION [None]
  - FALL [None]
  - DYSGEUSIA [None]
